FAERS Safety Report 20956994 (Version 1)
Quarter: 2022Q2

REPORT INFORMATION
  Report Type: Spontaneous
  Country: US (occurrence: None)
  Receive Date: 20220614
  Receipt Date: 20220614
  Transmission Date: 20220721
  Serious: No
  Sender: FDA-Public Use
  Company Number: None

PATIENT
  Sex: Female

DRUGS (8)
  1. VIGABATRIN [Suspect]
     Active Substance: VIGABATRIN
     Indication: Epilepsy
     Dosage: FREQUENCY : TWICE A DAY;?
     Route: 048
  2. EPIDIOLEX [Concomitant]
     Active Substance: CANNABIDIOL
  3. VITAMIN D [Concomitant]
     Active Substance: VITAMIN D NOS
  4. MULTI COMPLETE [Concomitant]
  5. MIRALAX [Concomitant]
     Active Substance: POLYETHYLENE GLYCOL 3350
  6. CLOBAZAM [Concomitant]
     Active Substance: CLOBAZAM
  7. XCOPRI [Concomitant]
     Active Substance: CENOBAMATE
  8. SERTRALINE HYDROCHLORIDE [Concomitant]
     Active Substance: SERTRALINE HYDROCHLORIDE

REACTIONS (1)
  - Intentional product use issue [None]
